FAERS Safety Report 24699930 (Version 1)
Quarter: 2024Q4

REPORT INFORMATION
  Report Type: Spontaneous
  Country: RO (occurrence: RO)
  Receive Date: 20241205
  Receipt Date: 20241205
  Transmission Date: 20250115
  Serious: Yes (Other)
  Sender: CELLTRION
  Company Number: RO-ABBVIE-5772307

PATIENT

DRUGS (2)
  1. ADALIMUMAB [Suspect]
     Active Substance: ADALIMUMAB
     Indication: Ankylosing spondylitis
     Dosage: 40 MG, Q2WEEKS
     Route: 058
     Dates: start: 20220202
  2. ADALIMUMAB [Suspect]
     Active Substance: ADALIMUMAB
     Indication: Sacroiliitis

REACTIONS (14)
  - Loss of consciousness [Unknown]
  - Demyelination [Unknown]
  - Head discomfort [Unknown]
  - Urinary incontinence [Unknown]
  - Inflammatory pain [Unknown]
  - Body fat disorder [Unknown]
  - Stenosis [Unknown]
  - Vertigo [Unknown]
  - Inflammation [Unknown]
  - Oedema [Unknown]
  - Sinusitis [Unknown]
  - Headache [Recovered/Resolved]
  - Asthenia [Unknown]
  - Intentional product use issue [Unknown]

NARRATIVE: CASE EVENT DATE: 20220101
